FAERS Safety Report 22023484 (Version 3)
Quarter: 2024Q4

REPORT INFORMATION
  Report Type: Spontaneous
  Country: US (occurrence: US)
  Receive Date: 20230223
  Receipt Date: 20241030
  Transmission Date: 20250115
  Serious: Yes (Other)
  Sender: ALKEM
  Company Number: None

PATIENT
  Age: 34 Year
  Sex: Female

DRUGS (9)
  1. MYCOPHENOLATE MOFETIL [Suspect]
     Active Substance: MYCOPHENOLATE MOFETIL
     Indication: Chronic cutaneous lupus erythematosus
     Dosage: 1000 MILLIGRAM, BID (TWICE DAILY)
     Route: 065
  2. MYCOPHENOLATE MOFETIL [Suspect]
     Active Substance: MYCOPHENOLATE MOFETIL
     Indication: Systemic lupus erythematosus
     Dosage: UNK (RESTART)
     Route: 065
  3. BELIMUMAB [Suspect]
     Active Substance: BELIMUMAB
     Indication: Systemic lupus erythematosus
     Dosage: 200 MILLIGRAM (EVERY WEEK) (ONCE WEEKLY)
     Route: 058
  4. BELIMUMAB [Suspect]
     Active Substance: BELIMUMAB
     Indication: Chronic cutaneous lupus erythematosus
     Dosage: UNK, ONCE WEEKLY (WEEKLY) (RESTART)
     Route: 065
  5. HYDROXYCHLOROQUINE [Suspect]
     Active Substance: HYDROXYCHLOROQUINE
     Indication: Chronic cutaneous lupus erythematosus
     Dosage: 300 MILLIGRAM, QD (EVERY 1 DAY) (DAILY)
     Route: 065
  6. HYDROXYCHLOROQUINE [Suspect]
     Active Substance: HYDROXYCHLOROQUINE
     Indication: Systemic lupus erythematosus
     Dosage: UNK (RESTART)
     Route: 065
  7. PREDNISONE [Suspect]
     Active Substance: PREDNISONE
     Indication: Chronic cutaneous lupus erythematosus
     Dosage: 20 MILLIGRAM, QD  (EVERY 1 DAY) (DAILY)
     Route: 048
  8. PREDNISONE [Suspect]
     Active Substance: PREDNISONE
     Indication: Systemic lupus erythematosus
     Dosage: 10 MILLIGRAM, QD (PER DAY)
     Route: 048
  9. PREDNISONE [Suspect]
     Active Substance: PREDNISONE
     Dosage: 40 MILLIGRAM, QD (TAPER STARTING) (MOUTH EVERY MORNING)
     Route: 048

REACTIONS (2)
  - Cutaneous lupus erythematosus [Recovering/Resolving]
  - Herpes zoster [Recovered/Resolved]
